FAERS Safety Report 15229808 (Version 2)
Quarter: 2018Q3

REPORT INFORMATION
  Report Type: Spontaneous
  Country: JP (occurrence: JP)
  Receive Date: 20180802
  Receipt Date: 20180827
  Transmission Date: 20181010
  Serious: Yes (Other)
  Sender: FDA-Public Use
  Company Number: JP-009507513-1807JPN002946J

PATIENT

DRUGS (1)
  1. KEYTRUDA [Suspect]
     Active Substance: PEMBROLIZUMAB
     Indication: NON-SMALL CELL LUNG CANCER
     Dosage: UNK
     Route: 041

REACTIONS (7)
  - Diabetes mellitus [Unknown]
  - Colitis [Unknown]
  - Type 1 diabetes mellitus [Unknown]
  - Autoimmune pancreatitis [Unknown]
  - Thyroid disorder [Unknown]
  - Lung disorder [Unknown]
  - Adrenal disorder [Unknown]
